FAERS Safety Report 5746200-X (Version None)
Quarter: 2008Q2

REPORT INFORMATION
  Report Type: 
  Country: None (occurrence: None)
  Receive Date: 20080522
  Receipt Date: 20080522
  Transmission Date: 20081010
  Serious: Yes (Life-Threatening, Hospitalization, Disabling)
  Sender: FDA-Public Use
  Company Number: None

PATIENT
  Age: 51 Year
  Sex: Female
  Weight: 72.5755 kg

DRUGS (1)
  1. HEPARIN [Suspect]
     Indication: ANTICOAGULANT THERAPY
     Dates: start: 20071214, end: 20071218

REACTIONS (5)
  - HEPARIN-INDUCED THROMBOCYTOPENIA [None]
  - SURGICAL FAILURE [None]
  - THERAPEUTIC PRODUCT CONTAMINATION [None]
  - THROMBOSIS [None]
  - TOE AMPUTATION [None]
